FAERS Safety Report 9117454 (Version 2)
Quarter: 2013Q2

REPORT INFORMATION
  Report Type: Spontaneous
  Country: US (occurrence: US)
  Receive Date: 20130225
  Receipt Date: 20130415
  Transmission Date: 20140414
  Serious: Yes (Hospitalization)
  Sender: FDA-Public Use
  Company Number: US-BIOGENIDEC-2013BI017568

PATIENT
  Age: 39 Year
  Sex: Male
  Weight: 68 kg

DRUGS (6)
  1. TYSABRI [Suspect]
     Indication: MULTIPLE SCLEROSIS
     Route: 042
     Dates: start: 20120608
  2. GABAPENTIN [Concomitant]
  3. SILDENAFIL [Concomitant]
  4. TESTOSTERONE [Concomitant]
  5. VITAMIN D [Concomitant]
  6. VITAMIN B12 [Concomitant]

REACTIONS (2)
  - Paraesthesia [Unknown]
  - Partial seizures [Recovered/Resolved]
